FAERS Safety Report 12639929 (Version 2)
Quarter: 2016Q3

REPORT INFORMATION
  Report Type: Spontaneous
  Country: JP (occurrence: JP)
  Receive Date: 20160810
  Receipt Date: 20160904
  Transmission Date: 20161109
  Serious: Yes (Hospitalization)
  Sender: FDA-Public Use
  Company Number: PHJP2016JP022736

PATIENT
  Age: 63 Year
  Sex: Male

DRUGS (1)
  1. NEORAL [Suspect]
     Active Substance: CYCLOSPORINE
     Indication: MYELODYSPLASTIC SYNDROME
     Dosage: 5 DF, QD (2 CAPSULES IN THE MORNING AND 3 CAPSULES IN THE EVENING)
     Route: 048

REACTIONS (3)
  - Product use issue [Unknown]
  - Blood creatinine increased [Unknown]
  - Cholelithiasis [Unknown]
